FAERS Safety Report 21386475 (Version 12)
Quarter: 2024Q4

REPORT INFORMATION
  Report Type: Report from Study
  Country: US (occurrence: US)
  Receive Date: 20220928
  Receipt Date: 20241004
  Transmission Date: 20250115
  Serious: No
  Sender: NOVARTIS
  Company Number: US-NOVARTISTESTPH-NVSC2022US219217

PATIENT
  Age: 71 Year
  Sex: Male

DRUGS (3)
  1. LEQVIO [Suspect]
     Active Substance: INCLISIRAN SODIUM
     Indication: Hypercholesterolaemia
     Dosage: UNK, Q6 MONTHS
     Route: 058
     Dates: start: 20220817
  2. LEQVIO [Suspect]
     Active Substance: INCLISIRAN SODIUM
     Dosage: UNK
     Route: 058
     Dates: start: 20221130
  3. LEQVIO [Suspect]
     Active Substance: INCLISIRAN SODIUM
     Dosage: UNK
     Route: 058
     Dates: start: 20230526

REACTIONS (9)
  - Memory impairment [Not Recovered/Not Resolved]
  - Blood cholesterol decreased [Unknown]
  - Sinus disorder [Unknown]
  - Increased upper airway secretion [Unknown]
  - Rhinorrhoea [Not Recovered/Not Resolved]
  - Pain in extremity [Recovered/Resolved]
  - Pain in extremity [Unknown]
  - Arthralgia [Unknown]
  - Burning sensation [Unknown]

NARRATIVE: CASE EVENT DATE: 20220801
